FAERS Safety Report 12651094 (Version 1)
Quarter: 2016Q3

REPORT INFORMATION
  Report Type: Spontaneous
  Country: US (occurrence: None)
  Receive Date: 20160811
  Receipt Date: 20160811
  Transmission Date: 20161109
  Serious: Yes (Disabling)
  Sender: FDA-Public Use
  Company Number: None

PATIENT
  Age: 75 Year
  Sex: Female
  Weight: 72.58 kg

DRUGS (11)
  1. SMZ/TMP DS 800-160 [Suspect]
     Active Substance: SULFAMETHOXAZOLE\TRIMETHOPRIM
     Indication: URINARY TRACT INFECTION
     Route: 048
     Dates: start: 20160617, end: 20160626
  2. LOSARTAN POT/HCT [Concomitant]
  3. CINNAMON. [Concomitant]
     Active Substance: CINNAMON
  4. CARVEDILOL. [Concomitant]
     Active Substance: CARVEDILOL
  5. FISH OIL [Concomitant]
     Active Substance: FISH OIL
  6. DONEPEZIL. [Concomitant]
     Active Substance: DONEPEZIL
  7. MULTIVITAMIN [Concomitant]
     Active Substance: VITAMINS
  8. ASPIRIN. [Concomitant]
     Active Substance: ASPIRIN
  9. CRESTOR [Concomitant]
     Active Substance: ROSUVASTATIN CALCIUM
  10. LEVOTHYROXIN SOD [Concomitant]
  11. METFORMIN [Concomitant]
     Active Substance: METFORMIN HYDROCHLORIDE

REACTIONS (7)
  - Decreased appetite [None]
  - Hypersomnia [None]
  - Blood creatinine increased [None]
  - Hypophagia [None]
  - Mini mental status examination abnormal [None]
  - Amnesia [None]
  - Cerebral small vessel ischaemic disease [None]

NARRATIVE: CASE EVENT DATE: 20160618
